FAERS Safety Report 9178424 (Version 1)
Quarter: 2012Q4

REPORT INFORMATION
  Report Type: 
  Country: US (occurrence: US)
  Receive Date: 20121029
  Receipt Date: 20121029
  Transmission Date: 20130627
  Serious: No
  Sender: FDA-Public Use
  Company Number: US-AMGEN-USASP2012053906

PATIENT
  Age: 25 Year
  Sex: Female
  Weight: 70.75 kg

DRUGS (9)
  1. ENBREL [Suspect]
     Indication: PRODUCT USED FOR UNKNOWN INDICATION
     Dosage: 50 mg, qwk
     Route: 058
  2. PLAQUENIL                          /00072602/ [Concomitant]
     Dosage: 200 mg, UNK
  3. METHOTREXATE [Concomitant]
     Dosage: 2.5 mg, UNK
  4. PREDNISONE [Concomitant]
     Dosage: 1 mg, UNK
  5. VITAMIN D /00107901/ [Concomitant]
     Dosage: 400 unit, UNK
  6. CALCIUM [Concomitant]
     Dosage: 500 UNK, UNK
  7. OMEGA 3                            /01334101/ [Concomitant]
     Dosage: UNK
  8. FOLIC ACID [Concomitant]
     Dosage: UNK
  9. HYDROXYCLOR [Concomitant]
     Dosage: 200 mg, UNK

REACTIONS (2)
  - Fatigue [Unknown]
  - Swelling [Recovered/Resolved]
